FAERS Safety Report 4608729-7 (Version None)
Quarter: 2005Q1

REPORT INFORMATION
  Report Type: 
  Country: None (occurrence: None)
  Receive Date: 20050309
  Receipt Date: 20050222
  Transmission Date: 20050727
  Serious: Yes (Hospitalization)
  Sender: FDA-Public Use
  Company Number: FR_050205903

PATIENT
  Age: 64 Year
  Sex: Female

DRUGS (1)
  1. ZYPREXA [Suspect]
     Indication: BIPOLAR I DISORDER
     Dosage: 20 MG DAY
     Dates: start: 20030801

REACTIONS (5)
  - ANAEMIA [None]
  - HYPERTHERMIA MALIGNANT [None]
  - NEUROLEPTIC MALIGNANT SYNDROME [None]
  - NEUTROPENIA [None]
  - THROMBOCYTOPENIA [None]
